FAERS Safety Report 21755633 (Version 3)
Quarter: 2024Q2

REPORT INFORMATION
  Report Type: Report from Study
  Country: US (occurrence: US)
  Receive Date: 20221220
  Receipt Date: 20240517
  Transmission Date: 20240715
  Serious: Yes (Hospitalization)
  Sender: FDA-Public Use
  Company Number: US-TAKEDA-US202013600

PATIENT
  Age: 67 Year
  Sex: Female

DRUGS (2)
  1. HUMAN IMMUNOGLOBULIN G [Suspect]
     Active Substance: HUMAN IMMUNOGLOBULIN G
     Indication: Primary immunodeficiency syndrome
     Dosage: UNK
     Route: 058
  2. HUMAN IMMUNOGLOBULIN G [Suspect]
     Active Substance: HUMAN IMMUNOGLOBULIN G
     Indication: Immunodeficiency common variable

REACTIONS (22)
  - Lower limb fracture [Unknown]
  - General physical health deterioration [Unknown]
  - Blood glucose increased [Unknown]
  - Weight increased [Unknown]
  - Stress [Unknown]
  - Scar [Unknown]
  - Back disorder [Unknown]
  - Cardiac disorder [Unknown]
  - Blood calcium increased [Unknown]
  - Infusion site scar [Unknown]
  - COVID-19 [Unknown]
  - Back injury [Unknown]
  - Blood iron decreased [Unknown]
  - Fractured coccyx [Unknown]
  - Splenic cyst [Unknown]
  - Fall [Unknown]
  - Renal cyst [Unknown]
  - Dyspnoea [Unknown]
  - Fatigue [Unknown]
  - Illness [Unknown]
  - Bladder disorder [Unknown]
  - Gastrointestinal disorder [Unknown]

NARRATIVE: CASE EVENT DATE: 20240516
